FAERS Safety Report 7589865-2 (Version None)
Quarter: 2011Q3

REPORT INFORMATION
  Report Type: 
  Country: None (occurrence: None)
  Receive Date: 20110705
  Receipt Date: 20110629
  Transmission Date: 20111222
  Serious: Yes (Other)
  Sender: FDA-Public Use
  Company Number: US-MERCK-1107USA00010

PATIENT
  Age: 49 Year
  Sex: Female

DRUGS (2)
  1. FOSAMAX [Suspect]
     Indication: OSTEOPOROSIS
     Route: 048
     Dates: start: 19970801, end: 20080801
  2. FOSAMAX [Suspect]
     Indication: OSTEOPOROSIS PROPHYLAXIS
     Route: 048
     Dates: start: 19970801, end: 20080801

REACTIONS (2)
  - LOW TURNOVER OSTEOPATHY [None]
  - FEMUR FRACTURE [None]
